FAERS Safety Report 20741908 (Version 14)
Quarter: 2023Q1

REPORT INFORMATION
  Report Type: Spontaneous
  Country: CA (occurrence: CA)
  Receive Date: 20220423
  Receipt Date: 20230327
  Transmission Date: 20230418
  Serious: Yes (Other)
  Sender: FDA-Public Use
  Company Number: CA-CELLTRION INC.-2022CA004930

PATIENT

DRUGS (18)
  1. INFLECTRA [Suspect]
     Active Substance: INFLIXIMAB-DYYB
     Indication: Colitis ulcerative
     Dosage: 5 MG/KG, MONTHLY (EVERY 4 WEEKS)
     Route: 042
     Dates: start: 20220315, end: 20220315
  2. INFLECTRA [Suspect]
     Active Substance: INFLIXIMAB-DYYB
     Dosage: 5 MG/KG (EVERY 4 WEEKS)
     Route: 042
     Dates: start: 20220315
  3. INFLECTRA [Suspect]
     Active Substance: INFLIXIMAB-DYYB
     Dosage: 5 MG/KG, MONTHLY (EVERY 4 WEEKS)
     Route: 042
     Dates: start: 20220315, end: 20220315
  4. INFLECTRA [Suspect]
     Active Substance: INFLIXIMAB-DYYB
     Dosage: 5 MG/KG, MONTHLY (EVERY 4 WEEKS)
     Route: 042
     Dates: start: 20220315, end: 20220315
  5. INFLECTRA [Suspect]
     Active Substance: INFLIXIMAB-DYYB
     Dosage: 420 MG EVERY 4 WEEKS
     Route: 042
     Dates: start: 20220315
  6. INFLECTRA [Suspect]
     Active Substance: INFLIXIMAB-DYYB
     Dosage: 5 MG/KG, MONTHLY (EVERY 4 WEEKS)
     Route: 042
     Dates: start: 20220412, end: 20220412
  7. INFLECTRA [Suspect]
     Active Substance: INFLIXIMAB-DYYB
     Dosage: 5 MG/KG, MONTHLY (EVERY 4 WEEKS)
     Route: 042
     Dates: start: 20220412, end: 20220412
  8. INFLECTRA [Suspect]
     Active Substance: INFLIXIMAB-DYYB
     Dosage: 5 MG/KG, MONTHLY (EVERY 4 WEEKS)
     Route: 042
     Dates: start: 20220510, end: 20220510
  9. INFLECTRA [Suspect]
     Active Substance: INFLIXIMAB-DYYB
     Dosage: 5 MG/KG, EVERY 4 WEEKS
     Route: 042
     Dates: start: 20220522
  10. INFLECTRA [Suspect]
     Active Substance: INFLIXIMAB-DYYB
     Dosage: 5 MG/KG, MONTHLY (EVERY 4 WEEKS)
     Route: 042
     Dates: start: 20220705
  11. INFLECTRA [Suspect]
     Active Substance: INFLIXIMAB-DYYB
     Dosage: 5 MG/KG, MONTHLY (EVERY 4 WEEKS)
     Route: 042
     Dates: start: 20220705
  12. INFLECTRA [Suspect]
     Active Substance: INFLIXIMAB-DYYB
     Dosage: 5 MG/KG, MONTHLY (EVERY 4 WEEKS)
     Route: 042
     Dates: start: 20220705
  13. INFLECTRA [Suspect]
     Active Substance: INFLIXIMAB-DYYB
     Dosage: 420 MG (5 MG/KG, EVERY 4 WEEKS)
     Route: 042
     Dates: start: 20220822
  14. INFLECTRA [Suspect]
     Active Substance: INFLIXIMAB-DYYB
     Dosage: 420 MG (5 MG/KG, EVERY 4 WEEKS)
     Route: 042
     Dates: start: 20220822
  15. INFLECTRA [Suspect]
     Active Substance: INFLIXIMAB-DYYB
     Dosage: 425 MG (5 MG/KG), EVERY 4 WEEKS
     Route: 042
     Dates: start: 20220920
  16. INFLECTRA [Suspect]
     Active Substance: INFLIXIMAB-DYYB
     Dosage: 420 MG (5 MG/KG), EVERY 4 WEEKS
     Route: 042
     Dates: start: 20220920
  17. INFLECTRA [Suspect]
     Active Substance: INFLIXIMAB-DYYB
     Dosage: 420 MG (5 MG/KG), EVERY 4 WEEKS
     Route: 042
     Dates: start: 20221020
  18. INFLECTRA [Suspect]
     Active Substance: INFLIXIMAB-DYYB
     Dosage: (5 MG/KG), EVERY 4 WEEKS
     Route: 042
     Dates: start: 20230105

REACTIONS (19)
  - Haematochezia [Unknown]
  - Haemorrhage [Unknown]
  - Drug ineffective [Unknown]
  - Loss of therapeutic response [Unknown]
  - Abdominal discomfort [Unknown]
  - Abdominal distension [Unknown]
  - Frequent bowel movements [Unknown]
  - Frequent bowel movements [Unknown]
  - COVID-19 [Unknown]
  - Malaise [Unknown]
  - Defaecation urgency [Unknown]
  - Food craving [Unknown]
  - Condition aggravated [Not Recovered/Not Resolved]
  - Nasopharyngitis [Unknown]
  - Sinusitis [Unknown]
  - Off label use [Unknown]
  - Off label use [Unknown]
  - Intentional product use issue [Unknown]
  - Inappropriate schedule of product administration [Unknown]

NARRATIVE: CASE EVENT DATE: 20220101
